FAERS Safety Report 4545077-8 (Version None)
Quarter: 2005Q1

REPORT INFORMATION
  Report Type: 
  Country: None (occurrence: None)
  Receive Date: 20050105
  Receipt Date: 20041027
  Transmission Date: 20050727
  Serious: Yes (Hospitalization)
  Sender: FDA-Public Use
  Company Number: PHBS2004JP14403

PATIENT
  Age: 47 Year
  Sex: Female

DRUGS (6)
  1. MUCOSOLVAN [Suspect]
     Indication: BRONCHIECTASIS
     Dosage: 45 MG, TID
     Route: 048
     Dates: start: 20030901, end: 20040801
  2. THEO-DUR [Suspect]
     Indication: ASTHMA
     Dosage: 100 MG, QID
     Route: 048
     Dates: start: 20030901, end: 20040301
  3. ACCOLATE [Suspect]
     Indication: ASTHMA
     Dosage: 20 MG, BID
     Route: 048
     Dates: start: 20030901, end: 20040301
  4. TEGRETOL [Suspect]
     Indication: EPILEPSY
     Dosage: 200 MG, BID
     Route: 048
     Dates: start: 20020513, end: 20041026
  5. TEGRETOL [Suspect]
     Dosage: 200 MG/DAY
     Route: 048
     Dates: start: 20041027, end: 20041110
  6. TEGRETOL [Suspect]
     Dosage: 200 MG/DAY
     Route: 048
     Dates: start: 20020502, end: 20020512

REACTIONS (20)
  - ALANINE AMINOTRANSFERASE INCREASED [None]
  - ASPARTATE AMINOTRANSFERASE INCREASED [None]
  - ASTHMA [None]
  - BLOOD ALKALINE PHOSPHATASE INCREASED [None]
  - BLOOD IMMUNOGLOBULIN A DECREASED [None]
  - BLOOD IMMUNOGLOBULIN G DECREASED [None]
  - BLOOD IMMUNOGLOBULIN M DECREASED [None]
  - BLOOD LACTATE DEHYDROGENASE INCREASED [None]
  - BRONCHIECTASIS [None]
  - BRONCHITIS [None]
  - COUGH [None]
  - DYSPHONIA [None]
  - EOSINOPHIL COUNT INCREASED [None]
  - EOSINOPHILIA [None]
  - GAMMA-GLUTAMYLTRANSFERASE INCREASED [None]
  - HEPATIC FUNCTION ABNORMAL [None]
  - IMMUNOGLOBULINS DECREASED [None]
  - LOBAR PNEUMONIA [None]
  - PRODUCTIVE COUGH [None]
  - PYREXIA [None]
